FAERS Safety Report 4536994-3 (Version None)
Quarter: 2004Q4

REPORT INFORMATION
  Report Type: 
  Country: None (occurrence: None)
  Receive Date: 20041220
  Receipt Date: 20041207
  Transmission Date: 20050328
  Serious: Yes (Other)
  Sender: FDA-Public Use
  Company Number: 2004104140

PATIENT
  Sex: Female

DRUGS (17)
  1. ZOLOFT [Suspect]
     Indication: DEPRESSION
     Dosage: (50 MG), ORAL
     Route: 048
  2. GENTAMICIN [Suspect]
     Indication: PSEUDOMONAS INFECTION
     Dosage: INTRAVENOUS
     Route: 042
     Dates: start: 20041022
  3. PIP/TAZO (PIPERACILLIN SODIUM, TAZOBACTAM SODIUM) [Suspect]
  4. IBUPROFEN [Suspect]
  5. TIZANIDINE HCL [Suspect]
  6. TRAMADOL HCL [Suspect]
  7. DOXORUBICIN HCL [Concomitant]
  8. ESOMEPRAZOLE (ESOMEPRAZOLE) [Concomitant]
  9. GABAPENTIN [Concomitant]
  10. CLONAZEPAM [Concomitant]
  11. MORPHINE SULFATE [Concomitant]
  12. ACETAMINOPHEN [Concomitant]
  13. LORAZEPAM [Concomitant]
  14. BACTRIM [Concomitant]
  15. HEPARIN-FRACTION, CALCIUM SALT (HEPARIN-FRACTION, CALCIUM SALT) [Concomitant]
  16. THIAMINE HCL [Concomitant]
  17. BECOZYME (MAGNESIUM CARBONATE, POTASSIUM IODIDE, SILICIC ACID, VITAMIN [Concomitant]

REACTIONS (14)
  - AGITATION [None]
  - ASTHENIA [None]
  - COORDINATION ABNORMAL [None]
  - DIARRHOEA [None]
  - DYSAESTHESIA [None]
  - HYPERAESTHESIA [None]
  - MYOCLONUS [None]
  - NEURALGIA [None]
  - PAIN [None]
  - POSTOPERATIVE INFECTION [None]
  - PSEUDOMONAS INFECTION [None]
  - SEROTONIN SYNDROME [None]
  - SOMNOLENCE [None]
  - TREMOR [None]
